FAERS Safety Report 15900648 (Version 1)
Quarter: 2019Q1

REPORT INFORMATION
  Report Type: Report from Study
  Country: NL (occurrence: NL)
  Receive Date: 20190201
  Receipt Date: 20190201
  Transmission Date: 20190417
  Serious: Yes (Other)
  Sender: FDA-Public Use
  Company Number: PHHY2019NL020606

PATIENT
  Sex: Female

DRUGS (1)
  1. SANDOSTATIN LAR DEPOT [Suspect]
     Active Substance: OCTREOTIDE ACETATE
     Indication: LUNG DISORDER
     Dosage: 30 MG/ 2ML, QMO
     Route: 030

REACTIONS (5)
  - Biliary dilatation [Unknown]
  - Dyspnoea [Unknown]
  - Weight increased [Unknown]
  - Liver disorder [Unknown]
  - Product use in unapproved indication [Unknown]
